FAERS Safety Report 6671392-8 (Version None)
Quarter: 2010Q2

REPORT INFORMATION
  Report Type: 
  Country: None (occurrence: None)
  Receive Date: 20100407
  Receipt Date: 20100329
  Transmission Date: 20101027
  Serious: Yes (Other)
  Sender: FDA-Public Use
  Company Number: B0644258A

PATIENT
  Age: 32 Year
  Sex: Male

DRUGS (4)
  1. VALTREX [Suspect]
     Indication: HERPES ZOSTER
     Dosage: 3000MG PER DAY
     Route: 048
     Dates: start: 20100325, end: 20100326
  2. LOXONIN [Concomitant]
  3. MUCOSTA [Concomitant]
     Route: 048
  4. METHYCOBAL [Concomitant]
     Route: 048

REACTIONS (1)
  - HAEMATOCHEZIA [None]
